FAERS Safety Report 9924582 (Version 1)
Quarter: 2014Q1

REPORT INFORMATION
  Report Type: Spontaneous
  Country: US (occurrence: US)
  Receive Date: 20140226
  Receipt Date: 20140226
  Transmission Date: 20141002
  Serious: No
  Sender: FDA-Public Use
  Company Number: US-PFIZER INC-2014052805

PATIENT
  Age: 57 Year
  Sex: Male
  Weight: 88.44 kg

DRUGS (4)
  1. LIPITOR [Suspect]
     Indication: BLOOD CHOLESTEROL INCREASED
     Dosage: 10 MG, UNK
  2. PRAVACHOL [Suspect]
     Indication: BLOOD CHOLESTEROL INCREASED
     Dosage: UNK
  3. ZOCOR [Suspect]
     Indication: BLOOD CHOLESTEROL INCREASED
     Dosage: UNK
  4. HYDROCODONE [Concomitant]
     Indication: BACK DISORDER
     Dosage: 325 MG, AS NEEDED

REACTIONS (1)
  - Myalgia [Recovered/Resolved]
